FAERS Safety Report 9090512 (Version 3)
Quarter: 2013Q4

REPORT INFORMATION
  Report Type: Report from Study
  Country: AU (occurrence: AU)
  Receive Date: 20130131
  Receipt Date: 20131107
  Transmission Date: 20140711
  Serious: No
  Sender: FDA-Public Use
  Company Number: AU-ROCHE-1185532

PATIENT
  Age: 37 Year
  Sex: Female

DRUGS (4)
  1. ACTEMRA [Suspect]
     Indication: RHEUMATOID ARTHRITIS
     Route: 042
     Dates: start: 20120622
  2. METHOTREXATE [Concomitant]
     Indication: RHEUMATOID ARTHRITIS
     Route: 048
  3. PLAQUENIL [Concomitant]
     Indication: RHEUMATOID ARTHRITIS
     Route: 048
  4. FOLIC ACID [Concomitant]
     Indication: RHEUMATOID ARTHRITIS
     Route: 048

REACTIONS (3)
  - Nausea [Recovered/Resolved]
  - Dizziness [Recovered/Resolved]
  - Vertigo [Recovered/Resolved]
